FAERS Safety Report 11838048 (Version 3)
Quarter: 2021Q2

REPORT INFORMATION
  Report Type: Report from Study
  Country: AR (occurrence: AR)
  Receive Date: 20151215
  Receipt Date: 20210609
  Transmission Date: 20210716
  Serious: Yes (Hospitalization, Other)
  Sender: FDA-Public Use
  Company Number: PHHY2015AR157303

PATIENT
  Age: 72 Year
  Sex: Female

DRUGS (11)
  1. NABRATIN [Concomitant]
     Active Substance: CLOPIDOGREL BISULFATE
     Indication: ANTICOAGULANT THERAPY
     Dosage: 75 MG, QD (START DATE: 6 YEARS AGO)
     Route: 065
  2. DOXIUM [Concomitant]
     Active Substance: CALCIUM DOBESILATE
     Indication: DIABETIC RETINOPATHY
     Dosage: 500 MG, QD
     Route: 065
  3. ARMONIL [Concomitant]
     Indication: PRODUCT USED FOR UNKNOWN INDICATION
     Dosage: 1 DF, QD
     Route: 065
  4. ZARATOR PLUS [Concomitant]
     Indication: BLOOD CHOLESTEROL ABNORMAL
     Dosage: 1 DF, QD (START DATE: 6 YEARS AGO)
     Route: 065
  5. EXFORGE [Suspect]
     Active Substance: AMLODIPINE BESYLATE\VALSARTAN
     Indication: HYPERTENSION
     Dosage: 1 DF (1 OF 10/320 MG), QD, STARTED 10 YEARS AGO APPROXIMATELY
     Route: 065
  6. INSULIN [Concomitant]
     Active Substance: INSULIN NOS
     Indication: DIABETES MELLITUS
     Dosage: UNK
     Route: 065
  7. IBUPROFEN. [Concomitant]
     Active Substance: IBUPROFEN
     Indication: SCIATICA
     Dosage: 400 MG, PRN WHEN NEEDED
     Route: 065
  8. EXFORGE [Suspect]
     Active Substance: AMLODIPINE BESYLATE\VALSARTAN
     Dosage: 1 DF (160/5 MG), QD
     Route: 065
  9. EXFORGE [Suspect]
     Active Substance: AMLODIPINE BESYLATE\VALSARTAN
     Dosage: 1 DF (320/10 MG), QD
     Route: 065
     Dates: start: 201511
  10. NABILA [Concomitant]
     Indication: HYPERTENSION
     Dosage: 5 MG, QD
     Route: 065
  11. ASPIRINA PREVENT [Concomitant]
     Active Substance: ASPIRIN
     Indication: PRODUCT USED FOR UNKNOWN INDICATION
     Dosage: UNK
     Route: 065

REACTIONS (14)
  - Arterial occlusive disease [Unknown]
  - Hyperhidrosis [Not Recovered/Not Resolved]
  - Dizziness [Recovered/Resolved]
  - Blood pressure increased [Unknown]
  - Angina pectoris [Unknown]
  - Blindness [Not Recovered/Not Resolved]
  - Chest discomfort [Unknown]
  - Panic reaction [Not Recovered/Not Resolved]
  - Balance disorder [Not Recovered/Not Resolved]
  - Agitation [Unknown]
  - Ischaemia [Recovered/Resolved]
  - Epistaxis [Not Recovered/Not Resolved]
  - Device occlusion [Recovered/Resolved]
  - Fear [Unknown]

NARRATIVE: CASE EVENT DATE: 201306
